FAERS Safety Report 14769225 (Version 2)
Quarter: 2019Q1

REPORT INFORMATION
  Report Type: Not Available
  Country: US (occurrence: US)
  Receive Date: 20180417
  Receipt Date: 20190110
  Transmission Date: 20190417
  Serious: No
  Sender: FDA-Public Use
  Company Number: US-NEUROCRINE BIOSCIENCES INC.-2018NBI00632

PATIENT
  Age: 43 Year
  Sex: Female

DRUGS (10)
  1. VITAMIN E [Concomitant]
     Active Substance: .ALPHA.-TOCOPHEROL
     Route: 048
  2. INGREZZA [Suspect]
     Active Substance: VALBENAZINE
     Indication: TARDIVE DYSKINESIA
     Route: 048
     Dates: start: 201711, end: 201801
  3. XANAX XR [Concomitant]
     Active Substance: ALPRAZOLAM
     Dosage: IN THE MORNING
     Route: 048
     Dates: start: 20161114
  4. AUSTEDO [Concomitant]
     Active Substance: DEUTETRABENAZINE
     Dosage: WITH FOOD
     Route: 048
  5. XANAX XR [Concomitant]
     Active Substance: ALPRAZOLAM
     Dosage: AS NEEDED
     Route: 048
  6. DOXEPIN [Concomitant]
     Active Substance: DOXEPIN
     Dosage: DAILY AT BEDTIME, CAN REPEAT THE DOSE IF NEEDED
     Route: 048
     Dates: start: 20151102
  7. ACETYLCYSTEINE. [Concomitant]
     Active Substance: ACETYLCYSTEINE
     Route: 048
     Dates: start: 20140821
  8. REXULTI [Concomitant]
     Active Substance: BREXPIPRAZOLE
     Route: 048
     Dates: start: 20180507
  9. ADDERALL [Concomitant]
     Active Substance: AMPHETAMINE ASPARTATE\AMPHETAMINE SULFATE\DEXTROAMPHETAMINE SACCHARATE\DEXTROAMPHETAMINE SULFATE
     Route: 048
  10. DEPAKOTE ER [Concomitant]
     Active Substance: DIVALPROEX SODIUM
     Dosage: EVERY NIGHT AT BEDTIME
     Route: 048

REACTIONS (2)
  - Lethargy [Recovered/Resolved]
  - Drug ineffective [None]

NARRATIVE: CASE EVENT DATE: 201711
